FAERS Safety Report 22030082 (Version 1)
Quarter: 2023Q1

REPORT INFORMATION
  Report Type: Spontaneous
  Country: US (occurrence: US)
  Receive Date: 20230223
  Receipt Date: 20230223
  Transmission Date: 20230417
  Serious: Yes (Other)
  Sender: FDA-Public Use
  Company Number: US-MALLINCKRODT-T202301289

PATIENT
  Sex: Female

DRUGS (1)
  1. H.P. ACTHAR [Suspect]
     Active Substance: CORTICOTROPIN
     Indication: Multiple sclerosis
     Dosage: UNK
     Route: 065
     Dates: start: 202207

REACTIONS (3)
  - Bladder cancer [Unknown]
  - Multiple sclerosis relapse [Not Recovered/Not Resolved]
  - JC polyomavirus test positive [Unknown]
